FAERS Safety Report 7011753-0 (Version None)
Quarter: 2010Q3

REPORT INFORMATION
  Report Type: 
  Country: None (occurrence: None)
  Receive Date: 20100923
  Receipt Date: 20090722
  Transmission Date: 20110219
  Serious: No
  Sender: FDA-Public Use
  Company Number: US-WYE-H10273109

PATIENT
  Sex: Female
  Weight: 63.11 kg

DRUGS (2)
  1. PREMARIN [Suspect]
     Indication: VULVOVAGINAL DRYNESS
     Route: 065
     Dates: start: 20090601, end: 20090715
  2. PREMARIN [Suspect]
     Indication: DRY SKIN

REACTIONS (3)
  - MEDICATION RESIDUE [None]
  - PRURITUS GENITAL [None]
  - STICKY SKIN [None]
